FAERS Safety Report 22363509 (Version 1)
Quarter: 2023Q2

REPORT INFORMATION
  Report Type: Spontaneous
  Country: CA (occurrence: CA)
  Receive Date: 20230525
  Receipt Date: 20230525
  Transmission Date: 20230721
  Serious: Yes (Other)
  Sender: FDA-Public Use
  Company Number: CA-CELLTRION INC.-2023CA010787

PATIENT

DRUGS (1)
  1. INFLECTRA [Suspect]
     Active Substance: INFLIXIMAB-DYYB
     Indication: Crohn^s disease
     Dosage: 400 MG
     Route: 042

REACTIONS (9)
  - Chest discomfort [Unknown]
  - Chills [Unknown]
  - Cough [Unknown]
  - Dyspnoea [Unknown]
  - Erythema [Unknown]
  - Flushing [Unknown]
  - Hyperhidrosis [Unknown]
  - Panic attack [Unknown]
  - Speech disorder [Unknown]
